FAERS Safety Report 21405786 (Version 1)
Quarter: 2022Q4

REPORT INFORMATION
  Report Type: Spontaneous
  Country: US (occurrence: US)
  Receive Date: 20221004
  Receipt Date: 20221004
  Transmission Date: 20230113
  Serious: Yes (Death, Other)
  Sender: FDA-Public Use
  Company Number: US-LUPIN PHARMACEUTICALS INC.-2022-11619

PATIENT
  Age: 20 Year
  Sex: Female

DRUGS (16)
  1. DECITABINE [Suspect]
     Active Substance: DECITABINE
     Indication: Acute myeloid leukaemia
     Dosage: UNK (FOURTH LINE THERAPY)
     Route: 065
  2. DECITABINE [Suspect]
     Active Substance: DECITABINE
     Dosage: UNK (FIFTH LINE THERAPY)
     Route: 065
  3. DECITABINE [Suspect]
     Active Substance: DECITABINE
     Dosage: UNK (SIXTH LINE THERAPY)
     Route: 065
  4. AZACITIDINE [Suspect]
     Active Substance: AZACITIDINE
     Indication: Acute myeloid leukaemia
     Dosage: UNK
     Route: 065
  5. MITOXANTRONE [Suspect]
     Active Substance: MITOXANTRONE HYDROCHLORIDE
     Indication: Acute myeloid leukaemia
     Dosage: SECOND LINE THERAPY
     Route: 065
  6. MIDOSTAURIN [Suspect]
     Active Substance: MIDOSTAURIN
     Indication: Acute myeloid leukaemia
     Dosage: SECOND LINE THERAPY
     Route: 065
  7. FLUDARABINE [Suspect]
     Active Substance: FLUDARABINE PHOSPHATE
     Indication: Acute myeloid leukaemia
     Dosage: FIRST LINE THERAPY
     Route: 065
  8. VORINOSTAT [Suspect]
     Active Substance: VORINOSTAT
     Indication: Acute myeloid leukaemia
     Dosage: FOURTH LINE THERAPY
     Route: 065
  9. SUNITINIB [Suspect]
     Active Substance: SUNITINIB
     Indication: Acute myeloid leukaemia
     Dosage: FOURTH LINE THERAPY
     Route: 065
  10. SUNITINIB [Suspect]
     Active Substance: SUNITINIB
     Dosage: FIFTH LINE THERAPY
     Route: 065
  11. SUNITINIB [Suspect]
     Active Substance: SUNITINIB
     Dosage: SIXTH LINE THERAPY
     Route: 065
  12. CYTARABINE [Suspect]
     Active Substance: CYTARABINE
     Indication: Acute myeloid leukaemia
     Dosage: UNK (FIRST LINE THERAPY)
     Route: 065
  13. CYTARABINE [Suspect]
     Active Substance: CYTARABINE
     Dosage: UNK (SECOND LINE THERAPY)
     Route: 065
  14. VENETOCLAX [Suspect]
     Active Substance: VENETOCLAX
     Indication: Acute myeloid leukaemia
     Dosage: FIFTH LINE THERAPY
     Route: 065
  15. VENETOCLAX [Suspect]
     Active Substance: VENETOCLAX
     Dosage: SIXTH LINE THERAPY
     Route: 065
  16. GILTERITINIB [Suspect]
     Active Substance: GILTERITINIB
     Indication: Acute myeloid leukaemia
     Dosage: 120 MG, QD (SIXTH LINE THERAPY; FOR 1 CYCLE)
     Route: 065

REACTIONS (3)
  - Febrile neutropenia [Fatal]
  - Thrombocytopenia [Fatal]
  - Anaemia [Fatal]
